FAERS Safety Report 13667084 (Version 1)
Quarter: 2017Q2

REPORT INFORMATION
  Report Type: Spontaneous
  Country: JP (occurrence: JP)
  Receive Date: 20170619
  Receipt Date: 20170619
  Transmission Date: 20170830
  Serious: Yes (Death)
  Sender: FDA-Public Use
  Company Number: JP-IMPAX LABORATORIES, INC-2017-IPXL-00153

PATIENT
  Age: 46 Year
  Sex: Female
  Weight: 53 kg

DRUGS (5)
  1. EPIRUBICIN HYDROCHLORIDE. [Suspect]
     Active Substance: EPIRUBICIN HYDROCHLORIDE
     Indication: INFLAMMATORY CARCINOMA OF THE BREAST
     Dosage: 140 MG, UNK
     Route: 065
  2. DOCETAXEL. [Suspect]
     Active Substance: DOCETAXEL
     Indication: INFLAMMATORY CARCINOMA OF THE BREAST
     Dosage: 110 MG / BODY / 3 TIMES A WEEK
     Route: 065
  3. OXYCODONE HYDROCHLORIDE. [Concomitant]
     Active Substance: OXYCODONE HYDROCHLORIDE
     Indication: BACK PAIN
     Dosage: 10 MG, EVERY HOUR
     Route: 065
  4. CYCLOPHOSPHAMIDE. [Suspect]
     Active Substance: CYCLOPHOSPHAMIDE
     Indication: INFLAMMATORY CARCINOMA OF THE BREAST
     Dosage: 900 MG/ BODY/ 3 WEEKS
     Route: 065
  5. OXYCODONE HYDROCHLORIDE. [Concomitant]
     Active Substance: OXYCODONE HYDROCHLORIDE
     Dosage: 20 MG, DAILY
     Route: 065

REACTIONS (1)
  - Malignant neoplasm progression [Fatal]
